FAERS Safety Report 8303531-7 (Version None)
Quarter: 2012Q2

REPORT INFORMATION
  Report Type: 
  Country: None (occurrence: None)
  Receive Date: 20120423
  Receipt Date: 20120417
  Transmission Date: 20120825
  Serious: Yes (Other)
  Sender: FDA-Public Use
  Company Number: US-PFIZER INC-2012096135

PATIENT
  Sex: Female

DRUGS (1)
  1. DEPO-PROVERA [Suspect]
     Dosage: 150 MG/ML, EVERY 3 MONTHS (Q 3 MONTHS)
     Route: 030

REACTIONS (2)
  - IMPAIRED WORK ABILITY [None]
  - CONVULSION [None]
